FAERS Safety Report 19406791 (Version 1)
Quarter: 2021Q2

REPORT INFORMATION
  Report Type: Spontaneous
  Country: CZ (occurrence: CZ)
  Receive Date: 20210611
  Receipt Date: 20210611
  Transmission Date: 20210717
  Serious: Yes (Other)
  Sender: FDA-Public Use
  Company Number: CZ-AMGEN-CZESP2021088168

PATIENT
  Age: 70 Year
  Sex: Female

DRUGS (3)
  1. CINACALCET HCL [Suspect]
     Active Substance: CINACALCET HYDROCHLORIDE
     Indication: CALCIPHYLAXIS
     Dosage: 30 MILLIGRAM, QD
     Route: 065
     Dates: start: 2007
  2. INSULIN [Concomitant]
     Active Substance: INSULIN NOS
     Indication: TYPE 2 DIABETES MELLITUS
     Dosage: UNK
     Dates: start: 1996
  3. CINACALCET HCL [Suspect]
     Active Substance: CINACALCET HYDROCHLORIDE
     Indication: OFF LABEL USE

REACTIONS (6)
  - Skin bacterial infection [Recovering/Resolving]
  - Blood parathyroid hormone decreased [Unknown]
  - Drug effective for unapproved indication [Unknown]
  - Off label use [Unknown]
  - Calciphylaxis [Recovering/Resolving]
  - C-reactive protein increased [Unknown]

NARRATIVE: CASE EVENT DATE: 2007
